FAERS Safety Report 5306560-0 (Version None)
Quarter: 2007Q2

REPORT INFORMATION
  Report Type: 
  Country: None (occurrence: None)
  Receive Date: 20070424
  Receipt Date: 20070413
  Transmission Date: 20071010
  Serious: Yes (Death, Hospitalization, Other)
  Sender: FDA-Public Use
  Company Number: JP-PFIZER INC-2007026311

PATIENT
  Sex: Male

DRUGS (8)
  1. VFEND [Suspect]
     Indication: PNEUMONIA
     Route: 042
     Dates: start: 20070328, end: 20070330
  2. ENDOXAN [Suspect]
     Indication: PROSTATE CANCER
     Route: 048
     Dates: start: 20050901, end: 20070330
  3. PRODIF [Concomitant]
     Indication: PNEUMONIA
     Route: 042
     Dates: start: 20070330, end: 20070401
  4. MEROPEN [Concomitant]
     Indication: PNEUMONIA
     Dates: start: 20070330, end: 20070401
  5. DECADRON [Concomitant]
     Indication: PROSTATE CANCER
     Route: 048
     Dates: start: 20060915, end: 20070329
  6. CEFTAZIDIME [Concomitant]
     Indication: PNEUMONIA
     Dates: start: 20070328, end: 20070330
  7. CIPROFLOXACIN [Concomitant]
     Route: 042
     Dates: start: 20070315, end: 20070327
  8. MICAFUNGIN [Concomitant]
     Indication: PNEUMONIA
     Route: 042
     Dates: start: 20070316, end: 20070320

REACTIONS (2)
  - PNEUMONIA [None]
  - WHITE BLOOD CELL COUNT DECREASED [None]
